FAERS Safety Report 7373308-8 (Version None)
Quarter: 2011Q1

REPORT INFORMATION
  Report Type: 
  Country: None (occurrence: None)
  Receive Date: 20110324
  Receipt Date: 20110316
  Transmission Date: 20110831
  Serious: Yes (Other)
  Sender: FDA-Public Use
  Company Number: FR-ASTRAZENECA-2011SE15315

PATIENT
  Age: 69 Year
  Sex: Female

DRUGS (5)
  1. REQUIP [Concomitant]
     Indication: PARKINSON'S DISEASE
  2. ANTIPLATELET AGENT [Concomitant]
  3. CRESTOR [Suspect]
     Indication: HYPERCHOLESTEROLAEMIA
     Route: 048
     Dates: start: 20090101, end: 20110101
  4. CRESTOR [Suspect]
     Indication: PROPHYLAXIS
     Route: 048
     Dates: start: 20090101, end: 20110101
  5. BETA-BLOCKER [Concomitant]

REACTIONS (2)
  - ROTATOR CUFF SYNDROME [None]
  - TENDONITIS [None]
